FAERS Safety Report 7299195-4 (Version None)
Quarter: 2011Q1

REPORT INFORMATION
  Report Type: 
  Country: None (occurrence: None)
  Receive Date: 20110217
  Receipt Date: 20110209
  Transmission Date: 20110831
  Serious: Yes (Other)
  Sender: FDA-Public Use
  Company Number: US-PFIZER INC-2010119450

PATIENT
  Sex: Female
  Weight: 83.9 kg

DRUGS (8)
  1. VITAMIN B-12 [Concomitant]
     Indication: OBESITY SURGERY
     Dosage: UNK
     Route: 060
  2. BUSPAR [Concomitant]
     Dosage: UNK
  3. LORAZEPAM [Concomitant]
  4. MULTI-VITAMINS [Concomitant]
     Indication: OBESITY SURGERY
     Dosage: UNK
  5. PRISTIQ [Suspect]
     Indication: DEPRESSION
     Dosage: 50 MG, 1X/DAY
     Dates: start: 20100908
  6. PERCOCET [Concomitant]
     Dosage: UNK
  7. HYDROCHLOROTHIAZIDE [Concomitant]
     Dosage: UNK
  8. ZOLOFT [Suspect]
     Indication: DEPRESSION
     Dosage: 150 MG, 1X/DAY

REACTIONS (5)
  - NERVOUSNESS [None]
  - WRONG TECHNIQUE IN DRUG USAGE PROCESS [None]
  - HIP SURGERY [None]
  - DRUG INEFFECTIVE [None]
  - ANXIETY [None]
